FAERS Safety Report 24235562 (Version 5)
Quarter: 2025Q1

REPORT INFORMATION
  Report Type: Spontaneous
  Country: US (occurrence: US)
  Receive Date: 20240822
  Receipt Date: 20250222
  Transmission Date: 20250408
  Serious: Yes (Hospitalization)
  Sender: SANOFI AVENTIS
  Company Number: US-SA-SAC20240817000751

PATIENT
  Age: 71 Year
  Sex: Female
  Weight: 135.62 kg

DRUGS (25)
  1. DUPIXENT [Suspect]
     Active Substance: DUPILUMAB
     Indication: Asthma
     Route: 058
     Dates: start: 20240724, end: 20240724
  2. DUPIXENT [Suspect]
     Active Substance: DUPILUMAB
     Dosage: 300 MG, QOW
     Route: 058
     Dates: start: 2024, end: 20250208
  3. TRELEGY ELLIPTA [Concomitant]
     Active Substance: FLUTICASONE FUROATE\UMECLIDINIUM BROMIDE\VILANTEROL TRIFENATATE
  4. TRELEGY ELLIPTA [Concomitant]
     Active Substance: FLUTICASONE FUROATE\UMECLIDINIUM BROMIDE\VILANTEROL TRIFENATATE
  5. POTASSIUM [Concomitant]
     Active Substance: POTASSIUM
  6. ALBUTEROL SULFATE [Concomitant]
     Active Substance: ALBUTEROL SULFATE
  7. ALBUTEROL SULFATE [Concomitant]
     Active Substance: ALBUTEROL SULFATE
  8. DILTIAZEM HYDROCHLORIDE [Concomitant]
     Active Substance: DILTIAZEM HYDROCHLORIDE
  9. DILTIAZEM HYDROCHLORIDE [Concomitant]
     Active Substance: DILTIAZEM HYDROCHLORIDE
  10. VITAMIN D NOS [Concomitant]
     Active Substance: CHOLECALCIFEROL\ERGOCALCIFEROL
  11. DIETARY SUPPLEMENT\HERBALS [Concomitant]
     Active Substance: DIETARY SUPPLEMENT\HERBALS
  12. DIETARY SUPPLEMENT\HERBALS [Concomitant]
     Active Substance: DIETARY SUPPLEMENT\HERBALS
  13. ELIQUIS [Concomitant]
     Active Substance: APIXABAN
  14. ELIQUIS [Concomitant]
     Active Substance: APIXABAN
  15. PREGABALIN [Concomitant]
     Active Substance: PREGABALIN
  16. PREGABALIN [Concomitant]
     Active Substance: PREGABALIN
  17. SINGULAIR [Concomitant]
     Active Substance: MONTELUKAST SODIUM
  18. SINGULAIR [Concomitant]
     Active Substance: MONTELUKAST SODIUM
  19. MESTINON [Concomitant]
     Active Substance: PYRIDOSTIGMINE BROMIDE
  20. DILTIAZEM [Concomitant]
     Active Substance: DILTIAZEM
  21. IMURAN [Concomitant]
     Active Substance: AZATHIOPRINE
  22. SINGULAIR [Concomitant]
     Active Substance: MONTELUKAST SODIUM
  23. PROTONIX [Concomitant]
     Active Substance: PANTOPRAZOLE SODIUM
  24. MESTINON [Concomitant]
     Active Substance: PYRIDOSTIGMINE BROMIDE
  25. LASIX [Concomitant]
     Active Substance: FUROSEMIDE

REACTIONS (3)
  - Influenza [Unknown]
  - Injection site pruritus [Recovering/Resolving]
  - Injection site erythema [Unknown]

NARRATIVE: CASE EVENT DATE: 20240101
